FAERS Safety Report 11423168 (Version 1)
Quarter: 2015Q3

REPORT INFORMATION
  Report Type: Spontaneous
  Country: US (occurrence: US)
  Receive Date: 20150827
  Receipt Date: 20150827
  Transmission Date: 20151125
  Serious: Yes (Other)
  Sender: FDA-Public Use
  Company Number: US-GLAXOSMITHKLINE-US2015GSK121294

PATIENT
  Sex: Female
  Weight: 62.13 kg

DRUGS (7)
  1. XANAX [Suspect]
     Active Substance: ALPRAZOLAM
     Indication: ANXIETY
  2. NEURONTIN [Suspect]
     Active Substance: GABAPENTIN
     Indication: PAIN
  3. WELLBUTRIN [Suspect]
     Active Substance: BUPROPION HYDROCHLORIDE
     Indication: ANXIETY
  4. EFFEXOR [Suspect]
     Active Substance: VENLAFAXINE HYDROCHLORIDE
     Indication: PAIN
     Dosage: UNK
     Dates: start: 1999
  5. WELLBUTRIN [Suspect]
     Active Substance: BUPROPION HYDROCHLORIDE
     Indication: DEPRESSION
     Dosage: UNK
     Dates: start: 1996
  6. XANAX [Suspect]
     Active Substance: ALPRAZOLAM
     Indication: DEPRESSION
     Dosage: UNK
     Dates: start: 1996
  7. METHADONE [Suspect]
     Active Substance: METHADONE HYDROCHLORIDE
     Indication: PRODUCT USED FOR UNKNOWN INDICATION
     Dosage: UNK

REACTIONS (16)
  - Mental impairment [Unknown]
  - Back pain [Unknown]
  - Neuralgia [Unknown]
  - Nervous system disorder [Unknown]
  - Radiculopathy [Unknown]
  - Drug ineffective [Unknown]
  - Pain [Unknown]
  - Central pain syndrome [Unknown]
  - Breakthrough pain [Unknown]
  - Drug dose omission [Unknown]
  - Aneurysm [Unknown]
  - Memory impairment [Unknown]
  - Surgery [Unknown]
  - Amnesia [Unknown]
  - Breast pain [Unknown]
  - Interventional procedure [Unknown]

NARRATIVE: CASE EVENT DATE: 1996
